FAERS Safety Report 7454443-2 (Version None)
Quarter: 2011Q2

REPORT INFORMATION
  Report Type: 
  Country: None (occurrence: None)
  Receive Date: 20110425
  Receipt Date: 20110411
  Transmission Date: 20111010
  Serious: Yes (Hospitalization)
  Sender: FDA-Public Use
  Company Number: 2011PL000049

PATIENT
  Age: 4 Year
  Sex: Male

DRUGS (3)
  1. MERCAPTOPURINE [Suspect]
     Indication: ACUTE LYMPHOCYTIC LEUKAEMIA
     Dosage: 75 MG/M2;QD
  2. BACTRIM [Concomitant]
  3. METHOTREXATE [Concomitant]

REACTIONS (1)
  - HYPOGLYCAEMIC SEIZURE [None]
